FAERS Safety Report 9472393 (Version 1)
Quarter: 2013Q3

REPORT INFORMATION
  Report Type: Spontaneous
  Country: US (occurrence: US)
  Receive Date: 20130823
  Receipt Date: 20130823
  Transmission Date: 20140515
  Serious: Yes (Other)
  Sender: FDA-Public Use
  Company Number: US-PFIZER INC-2013242945

PATIENT
  Age: 65 Year
  Sex: Male
  Weight: 81.63 kg

DRUGS (2)
  1. VENLAFAXINE HCL [Suspect]
     Indication: DEPRESSION
     Dosage: 65 MG, 1X/DAY
     Dates: start: 201211
  2. VENLAFAXINE HCL [Suspect]
     Indication: ANXIETY
     Dosage: 150 MG, 1X/DAY
     Dates: start: 201212

REACTIONS (3)
  - Self injurious behaviour [Not Recovered/Not Resolved]
  - Sleep apnoea syndrome [Not Recovered/Not Resolved]
  - Abnormal dreams [Not Recovered/Not Resolved]
